FAERS Safety Report 6792818-5 (Version None)
Quarter: 2010Q2

REPORT INFORMATION
  Report Type: 
  Country: None (occurrence: None)
  Receive Date: 20100624
  Receipt Date: 20080926
  Transmission Date: 20101027
  Serious: No
  Sender: FDA-Public Use
  Company Number: US-PFIZER INC-2008081697

PATIENT
  Sex: Female
  Weight: 60 kg

DRUGS (4)
  1. AROMASIN [Suspect]
     Indication: BREAST CANCER
     Dates: start: 20070906, end: 20080901
  2. ALBUTEROL [Concomitant]
  3. ADVAIR DISKUS 100/50 [Concomitant]
  4. SPIRIVA [Concomitant]

REACTIONS (4)
  - BODY HEIGHT DECREASED [None]
  - DISEASE PROGRESSION [None]
  - FALL [None]
  - JOINT SPRAIN [None]
